FAERS Safety Report 12622491 (Version 4)
Quarter: 2016Q3

REPORT INFORMATION
  Report Type: Report from Study
  Country: US (occurrence: US)
  Receive Date: 20160804
  Receipt Date: 20160829
  Transmission Date: 20161109
  Serious: Yes (Hospitalization)
  Sender: FDA-Public Use
  Company Number: US-SA-2016SA138743

PATIENT
  Age: 60 Year
  Sex: Male

DRUGS (2)
  1. LEMTRADA [Suspect]
     Active Substance: ALEMTUZUMAB
     Indication: MULTIPLE SCLEROSIS
     Route: 041
     Dates: start: 20160718, end: 20160722
  2. XANAX [Concomitant]
     Active Substance: ALPRAZOLAM
     Dates: end: 201608

REACTIONS (16)
  - Limb discomfort [Not Recovered/Not Resolved]
  - Odynophagia [Not Recovered/Not Resolved]
  - Increased appetite [Not Recovered/Not Resolved]
  - Feeling abnormal [Not Recovered/Not Resolved]
  - Disorientation [Not Recovered/Not Resolved]
  - Dysphagia [Not Recovered/Not Resolved]
  - Memory impairment [Not Recovered/Not Resolved]
  - Joint swelling [Not Recovered/Not Resolved]
  - Muscular weakness [Not Recovered/Not Resolved]
  - Candida infection [Not Recovered/Not Resolved]
  - Gait disturbance [Not Recovered/Not Resolved]
  - Erythema [Not Recovered/Not Resolved]
  - Hemiparesis [Not Recovered/Not Resolved]
  - Speech disorder [Not Recovered/Not Resolved]
  - Pain in extremity [Recovering/Resolving]
  - Insomnia [Not Recovered/Not Resolved]

NARRATIVE: CASE EVENT DATE: 2016
